FAERS Safety Report 7763872-9 (Version None)
Quarter: 2011Q3

REPORT INFORMATION
  Report Type: 
  Country: None (occurrence: None)
  Receive Date: 20110921
  Receipt Date: 20110909
  Transmission Date: 20111222
  Serious: Yes (Hospitalization, Other)
  Sender: FDA-Public Use
  Company Number: US-BAYER-2011-084590

PATIENT
  Age: 26 Year
  Sex: Female

DRUGS (1)
  1. SAFYRAL [Suspect]
     Dosage: UNK
     Dates: start: 20110501

REACTIONS (4)
  - PULMONARY HAEMORRHAGE [None]
  - PAIN IN EXTREMITY [None]
  - DEEP VEIN THROMBOSIS [None]
  - PULMONARY EMBOLISM [None]
